FAERS Safety Report 9445862 (Version 1)
Quarter: 2013Q3

REPORT INFORMATION
  Report Type: Spontaneous
  Country: FR (occurrence: FR)
  Receive Date: 20130807
  Receipt Date: 20130807
  Transmission Date: 20140515
  Serious: Yes (Hospitalization)
  Sender: FDA-Public Use
  Company Number: FR-BRISTOL-MYERS SQUIBB COMPANY-19158245

PATIENT
  Age: 68 Year
  Sex: Male

DRUGS (9)
  1. ONGLYZA TABS 5 MG [Suspect]
     Route: 048
     Dates: end: 20130701
  2. FORTZAAR [Suspect]
     Route: 048
     Dates: end: 20130701
  3. GLUCOR [Concomitant]
  4. LANTUS [Concomitant]
  5. PAROXETINE [Concomitant]
  6. TEMERIT [Concomitant]
  7. TAHOR [Concomitant]
  8. KARDEGIC [Concomitant]
  9. METFORMINE [Concomitant]

REACTIONS (3)
  - Hyperlipasaemia [Recovered/Resolved]
  - Nausea [Recovered/Resolved]
  - Vomiting [Recovered/Resolved]
